FAERS Safety Report 25868395 (Version 3)
Quarter: 2025Q4

REPORT INFORMATION
  Report Type: Spontaneous
  Country: EU (occurrence: EU)
  Receive Date: 20251001
  Receipt Date: 20251024
  Transmission Date: 20260118
  Serious: Yes (Hospitalization)
  Sender: ALKEM
  Company Number: None

PATIENT
  Age: 78 Year
  Sex: Male
  Weight: 54.1 kg

DRUGS (5)
  1. TACROLIMUS [Interacting]
     Active Substance: TACROLIMUS
     Indication: Congenital cystic kidney disease
     Dosage: 1 DOSAGE FORM, QD (6.5 MILLIGRAM, 176.7 NANOGRAM PER MILLILITRE (ADVAGRAF))
     Route: 065
  2. TACROLIMUS [Interacting]
     Active Substance: TACROLIMUS
     Dosage: UNK (95.3 NANOGRAM/MILLILITRE)
     Route: 065
  3. TACROLIMUS [Interacting]
     Active Substance: TACROLIMUS
     Dosage: UNK (176.7 NANOGRAM/MILLILITRE)
     Route: 065
  4. NIRMATRELVIR [Interacting]
     Active Substance: NIRMATRELVIR
     Indication: COVID-19
     Dosage: UNK
     Route: 065
     Dates: start: 20240106, end: 20240111
  5. RITONAVIR [Interacting]
     Active Substance: RITONAVIR
     Indication: COVID-19
     Dosage: UNK
     Route: 065
     Dates: start: 20240106, end: 20240111

REACTIONS (4)
  - Drug interaction [Unknown]
  - Confusional state [Recovered/Resolved]
  - Overdose [Unknown]
  - Asthenia [Recovered/Resolved]

NARRATIVE: CASE EVENT DATE: 20240101
